FAERS Safety Report 6217679-4 (Version None)
Quarter: 2009Q2

REPORT INFORMATION
  Report Type: 
  Country: None (occurrence: None)
  Receive Date: 20090608
  Receipt Date: 20090528
  Transmission Date: 20091009
  Serious: Yes (Death)
  Sender: FDA-Public Use
  Company Number: US-PFIZER INC-2009220638

PATIENT
  Sex: Female
  Weight: 86.182 kg

DRUGS (2)
  1. SUTENT [Suspect]
     Route: 048
     Dates: start: 20090513
  2. INSULIN INJECTION [Concomitant]

REACTIONS (4)
  - DEATH [None]
  - DISEASE PROGRESSION [None]
  - HEPATIC NEOPLASM MALIGNANT [None]
  - NO THERAPEUTIC RESPONSE [None]
